FAERS Safety Report 5912820-2 (Version None)
Quarter: 2008Q4

REPORT INFORMATION
  Report Type: 
  Country: None (occurrence: None)
  Receive Date: 20081006
  Receipt Date: 20080922
  Transmission Date: 20090506
  Serious: Yes (Hospitalization, Other)
  Sender: FDA-Public Use
  Company Number: DSJ-2008-10879

PATIENT
  Age: 69 Year
  Sex: Female
  Weight: 55.3 kg

DRUGS (7)
  1. OLMESARTAN MEDOXOMIL [Suspect]
     Indication: HYPERTENSION
     Dosage: 10 MG (10 MG, 1 IN 1 D) ,PER ORAL
     Route: 048
     Dates: start: 20080313, end: 20080522
  2. AMLODIN OD (AMLODIPINE BESILATE) (AMLODIPINE BESILATE) [Concomitant]
  3. TAKEPRON OD (LANSOPRAZOLE) (LANSOPRAZOLE) [Concomitant]
  4. AMARYL [Concomitant]
  5. MAGNESIUM OXIDE (MAGNESIUM OXIDE) (MAGNESIUM OXIDE) [Concomitant]
  6. TRIAZOLAM [Concomitant]
  7. SALOBEL (ALLOPURINOL) (ALLOPURINOL) [Concomitant]

REACTIONS (5)
  - CONDITION AGGRAVATED [None]
  - DIABETIC NEPHROPATHY [None]
  - DISEASE PROGRESSION [None]
  - NEPHROGENIC ANAEMIA [None]
  - RENAL IMPAIRMENT [None]
